FAERS Safety Report 16249559 (Version 2)
Quarter: 2019Q4

REPORT INFORMATION
  Report Type: Report from Study
  Country: US (occurrence: US)
  Receive Date: 20190429
  Receipt Date: 20191204
  Transmission Date: 20200122
  Serious: No
  Sender: FDA-Public Use
  Company Number: PHEH2019US016622

PATIENT
  Sex: Male

DRUGS (1)
  1. GILENYA [Suspect]
     Active Substance: FINGOLIMOD HYDROCHLORIDE
     Indication: MULTIPLE SCLEROSIS RELAPSE
     Dosage: 0.5 MG, QD
     Route: 048
     Dates: start: 20190206

REACTIONS (6)
  - Panic attack [Unknown]
  - Delusion [Unknown]
  - Stress [Unknown]
  - Fine motor skill dysfunction [Unknown]
  - Gait disturbance [Unknown]
  - Pain in extremity [Unknown]
